FAERS Safety Report 12453147 (Version 1)
Quarter: 2016Q2

REPORT INFORMATION
  Report Type: Other
  Country: ES (occurrence: ES)
  Receive Date: 20160609
  Receipt Date: 20160609
  Transmission Date: 20160815
  Serious: Yes (Death)
  Sender: FDA-Public Use
  Company Number: ES-APOTEX-2016AP008859

PATIENT
  Age: 78 Year
  Sex: Female

DRUGS (6)
  1. PAROXETINE. [Suspect]
     Active Substance: PAROXETINE
     Dosage: 20 MG, QD
     Route: 048
     Dates: start: 201004, end: 20151122
  2. KEPPRA [Suspect]
     Active Substance: LEVETIRACETAM
     Indication: EPILEPSY
     Dosage: 1500 MG, QD
     Route: 048
     Dates: start: 201402, end: 20151122
  3. TROMALYT [Suspect]
     Active Substance: ASPIRIN
     Indication: ATRIAL FIBRILLATION
     Dosage: 150 MG, QD
     Route: 048
     Dates: start: 201402, end: 20151122
  4. TRANXILIUM CAPSULE, HARD [Concomitant]
     Indication: DEPRESSION
     Dosage: 10 MG, QD
     Route: 048
     Dates: start: 200810, end: 20151122
  5. ESOMEPRAZOLE [Concomitant]
     Active Substance: ESOMEPRAZOLE
     Indication: GASTROOESOPHAGEAL REFLUX PROPHYLAXIS
     Dosage: 20 MG, BID
     Route: 048
     Dates: start: 201405, end: 20151122
  6. HIDROFEROL ORAL SOLUTION [Concomitant]
     Indication: HYPERPARATHYROIDISM
     Dosage: 226 MG, UNK
     Route: 048
     Dates: start: 200805, end: 20151122

REACTIONS (3)
  - Cerebral haematoma [Fatal]
  - Neurogenic shock [None]
  - Brain death [None]

NARRATIVE: CASE EVENT DATE: 20151122
